FAERS Safety Report 9663686 (Version 1)
Quarter: 2013Q4

REPORT INFORMATION
  Report Type: Report from Study
  Country: US (occurrence: US)
  Receive Date: 20131101
  Receipt Date: 20131101
  Transmission Date: 20140711
  Serious: Yes (Other)
  Sender: FDA-Public Use
  Company Number: PHHY2013US119920

PATIENT
  Age: 19 Year
  Sex: Male
  Weight: 55 kg

DRUGS (17)
  1. SIMULECT [Suspect]
     Indication: ACUTE GRAFT VERSUS HOST DISEASE
     Dosage: 20 MG, Q 7 DAYS
     Route: 042
     Dates: start: 20130823
  2. INFLIXIMAB [Suspect]
     Indication: ACUTE GRAFT VERSUS HOST DISEASE
     Dosage: 10 MG/KG/DOSE Q 7 DAYS
     Route: 042
     Dates: start: 20130823
  3. ESOMEPRAZOLE [Concomitant]
     Indication: GASTRIC DISORDER
     Dosage: UNK
  4. BUDESONIDE [Concomitant]
     Indication: GRAFT VERSUS HOST DISEASE
     Dosage: UNK
  5. DAPSONE [Concomitant]
     Indication: ANTIBIOTIC PROPHYLAXIS
     Dosage: UNK
  6. VORICONAZOLE [Concomitant]
     Indication: ANTIFUNGAL PROPHYLAXIS
     Dosage: UNK
  7. VALACICLOVIR [Concomitant]
     Indication: ANTIVIRAL PROPHYLAXIS
     Dosage: UNK
  8. TACROLIMUS [Concomitant]
     Indication: PROPHYLAXIS AGAINST GRAFT VERSUS HOST DISEASE
     Dosage: UNK
  9. METHYLPREDNISOLONE [Concomitant]
     Indication: ACUTE GRAFT VERSUS HOST DISEASE
     Dosage: UNK
  10. INSULIN [Concomitant]
     Indication: BLOOD GLUCOSE INCREASED
     Dosage: UNK
  11. CORTICOSTEROIDS [Concomitant]
     Dosage: UNK
  12. DIPHENOXYLATE/ATROPINE [Concomitant]
     Indication: DIARRHOEA
     Dosage: UNK
  13. LOPERAMIDE [Concomitant]
     Indication: DIARRHOEA
     Dosage: UNK
  14. HEPARIN [Concomitant]
     Dosage: UNK
  15. RED BLOOD CELLS [Concomitant]
     Dosage: 2 UNITS
     Dates: start: 20130826
  16. PLATELETS [Concomitant]
     Dosage: 1 UNIT
     Dates: start: 20130826
  17. PLATELETS [Concomitant]
     Dosage: UNK
     Dates: start: 20130828

REACTIONS (10)
  - Cerebrovascular accident [Unknown]
  - Embolic cerebral infarction [Unknown]
  - Hypoaesthesia [Unknown]
  - Paraesthesia [Unknown]
  - Neural tube defect [Recovered/Resolved]
  - Conjunctival haemorrhage [Recovered/Resolved]
  - Vision blurred [Recovered/Resolved]
  - Headache [Recovered/Resolved]
  - Dizziness [Recovered/Resolved]
  - Hyperhidrosis [Unknown]
